FAERS Safety Report 24721162 (Version 1)
Quarter: 2024Q4

REPORT INFORMATION
  Report Type: Report from Study
  Country: DE (occurrence: DE)
  Receive Date: 20241211
  Receipt Date: 20241211
  Transmission Date: 20250115
  Serious: Yes (Hospitalization, Other)
  Sender: ACCORD
  Company Number: None

PATIENT
  Sex: Female
  Weight: 65 kg

DRUGS (11)
  1. FULVESTRANT [Suspect]
     Active Substance: FULVESTRANT
     Indication: Hormone receptor positive HER2 negative breast cancer
     Dosage: 500 MG, Q4W (EVERY 4 WEEKS)
     Dates: start: 20191220, end: 20231016
  2. RIBOCICLIB [Suspect]
     Active Substance: RIBOCICLIB
     Indication: Hormone receptor positive HER2 negative breast cancer
     Dosage: 400 MG, QD (21 DAYS INTAKE, 7 DAYS PAUSE)
     Dates: start: 20191220, end: 20200312
  3. AMANTADINE [Concomitant]
     Active Substance: AMANTADINE
     Indication: Parkinsonism
     Dosage: 200 MG
     Dates: start: 20231028, end: 20231107
  4. L DOPA [Concomitant]
     Active Substance: LEVODOPA
     Indication: Parkinsonism
     Dosage: 100 MG (3X)
     Dates: start: 20231028
  5. RIBOCICLIB [Suspect]
     Active Substance: RIBOCICLIB
     Indication: Hormone receptor positive HER2 negative breast cancer
     Dosage: 600 MG, QD (21 DAYS INTAKE, 7 DAYS PAUSE)
     Dates: start: 20200313, end: 20200604
  6. RIBOCICLIB [Suspect]
     Active Substance: RIBOCICLIB
     Indication: Hormone receptor positive HER2 negative breast cancer
     Dosage: 400 MG, QD (21 DAYS INTAKE, 7 DAYS PAUSE)
     Dates: start: 20200605, end: 20200702
  7. RIBOCICLIB [Suspect]
     Active Substance: RIBOCICLIB
     Indication: Hormone receptor positive HER2 negative breast cancer
     Dosage: 600 MG, QD (21 DAYS INTAKE, 7 DAYS PAUSE)
     Dates: start: 20200703, end: 20210308
  8. RIBOCICLIB [Suspect]
     Active Substance: RIBOCICLIB
     Indication: Hormone receptor positive HER2 negative breast cancer
     Dosage: 400 MG, QD (21 DAYS INTAKE, 7 DAYS PAUSE)
     Dates: start: 20210319, end: 20220310
  9. RIBOCICLIB [Suspect]
     Active Substance: RIBOCICLIB
     Indication: Hormone receptor positive HER2 negative breast cancer
     Dosage: 200 MG, QD (21 DAYS INTAKE, 7 DAYS PAUSE)
     Dates: start: 20220318, end: 20221010
  10. RIBOCICLIB [Suspect]
     Active Substance: RIBOCICLIB
     Indication: Hormone receptor positive HER2 negative breast cancer
     Dosage: 200 MG, QD (21 DAYS INTAKE, 7 DAYS PAUSE)
     Dates: start: 20221028, end: 20230216
  11. RIBOCICLIB [Suspect]
     Active Substance: RIBOCICLIB
     Indication: Hormone receptor positive HER2 negative breast cancer
     Dosage: 200 MG, QD (21 DAYS INTAKE, 7 DAYS PAUSE)
     Dates: start: 20230317, end: 20231107

REACTIONS (32)
  - Fall [Recovering/Resolving]
  - Dyspnoea [Unknown]
  - Polyneuropathy [Unknown]
  - Respiratory failure [Unknown]
  - Endocarditis [Unknown]
  - Inflammation [Unknown]
  - General physical health deterioration [Recovering/Resolving]
  - Head injury [Unknown]
  - Spinal cord haematoma [Unknown]
  - Aspiration [Recovering/Resolving]
  - Rib fracture [Unknown]
  - Choking [Recovering/Resolving]
  - Gaze palsy [Unknown]
  - Haematoma [Recovering/Resolving]
  - Spinal fracture [Recovering/Resolving]
  - Mobility decreased [Not Recovered/Not Resolved]
  - Neutropenia [Recovered/Resolved]
  - Cataract [Not Recovered/Not Resolved]
  - Ocular discomfort [Not Recovered/Not Resolved]
  - Renal impairment [Recovering/Resolving]
  - Muscular weakness [Not Recovered/Not Resolved]
  - Asthenia [Not Recovered/Not Resolved]
  - Fatigue [Not Recovered/Not Resolved]
  - Speech disorder [Not Recovered/Not Resolved]
  - Sensory disturbance [Not Recovered/Not Resolved]
  - Goitre [Not Recovered/Not Resolved]
  - Vocal cord paralysis [Not Recovered/Not Resolved]
  - Periorbital haematoma [Recovering/Resolving]
  - Swelling [Recovering/Resolving]
  - Skin laceration [Recovering/Resolving]
  - Dizziness [Unknown]
  - Sleep disorder [Unknown]

NARRATIVE: CASE EVENT DATE: 20200116
